FAERS Safety Report 5009803-6 (Version None)
Quarter: 2006Q2

REPORT INFORMATION
  Report Type: 
  Country: None (occurrence: None)
  Receive Date: 20060524
  Receipt Date: 20060518
  Transmission Date: 20061013
  Serious: Yes (Death)
  Sender: FDA-Public Use
  Company Number: FR-AVENTIS-200611866FR

PATIENT
  Age: 67 Year
  Sex: Female

DRUGS (10)
  1. LANTUS [Suspect]
     Indication: DIABETES MELLITUS INSULIN-DEPENDENT
     Route: 058
     Dates: end: 20060304
  2. NOVORAPID [Suspect]
     Indication: DIABETES MELLITUS INSULIN-DEPENDENT
     Route: 058
     Dates: end: 20060304
  3. AMLOR [Concomitant]
  4. SECTRAL [Concomitant]
  5. PLAVIX [Concomitant]
  6. ZOCOR [Concomitant]
  7. ZESTRIL [Concomitant]
  8. LASILIX [Concomitant]
  9. MOPRAL [Concomitant]
  10. SEROPLEX [Concomitant]

REACTIONS (1)
  - HYPOGLYCAEMIC COMA [None]
